FAERS Safety Report 10297308 (Version 2)
Quarter: 2014Q4

REPORT INFORMATION
  Report Type: Spontaneous
  Country: SE (occurrence: SE)
  Receive Date: 20140711
  Receipt Date: 20141229
  Transmission Date: 20150528
  Serious: Yes (Hospitalization)
  Sender: FDA-Public Use
  Company Number: SE-TEVA-492831ISR

PATIENT
  Age: 57 Year
  Sex: Female

DRUGS (5)
  1. REPLENS [Concomitant]
     Active Substance: CARBOMER 934\GLYCERIN\METHYLPARABEN\PROPYLPARABEN\SODIUM HYDROXIDE
  2. OXASCAND 10 MG TABLETT [Suspect]
     Active Substance: OXAZEPAM
     Route: 048
     Dates: start: 20130316, end: 20130316
  3. ANASTROZOLE. [Concomitant]
     Active Substance: ANASTROZOLE
  4. PANODIL 500 MG FILMDRAGERAD TABLETT [Suspect]
     Active Substance: ACETAMINOPHEN
     Dosage: 10 PCS
     Route: 048
     Dates: start: 20130316, end: 20130316
  5. SERTRALINE [Suspect]
     Active Substance: SERTRALINE HYDROCHLORIDE
     Dosage: 30 PCS
     Route: 048
     Dates: start: 20130316, end: 20130316

REACTIONS (1)
  - Toxicity to various agents [Recovered/Resolved]

NARRATIVE: CASE EVENT DATE: 20130316
